FAERS Safety Report 13302952 (Version 6)
Quarter: 2017Q3

REPORT INFORMATION
  Report Type: Report from Study
  Country: US (occurrence: US)
  Receive Date: 20170307
  Receipt Date: 20170710
  Transmission Date: 20171127
  Serious: Yes (Death, Hospitalization, Other)
  Sender: FDA-Public Use
  Company Number: US-PFIZER INC-2017056996

PATIENT
  Age: 70 Year
  Sex: Male

DRUGS (19)
  1. MORPHINE [Concomitant]
     Active Substance: MORPHINE
     Dosage: UNK
     Dates: start: 20170220
  2. SENOKOT [Concomitant]
     Active Substance: SENNOSIDES
     Dosage: UNK
     Dates: start: 20170210
  3. SUTENT [Suspect]
     Active Substance: SUNITINIB MALATE
     Indication: RENAL CANCER METASTATIC
     Dosage: 37.5 MG, CYCLIC (28 DAYS ON/14 DAYS OFF)
     Route: 048
     Dates: start: 20170120
  4. LASIX [Concomitant]
     Active Substance: FUROSEMIDE
     Dosage: UNK
     Dates: start: 20170120
  5. LEVOTHYROXINE. [Concomitant]
     Active Substance: LEVOTHYROXINE
     Dosage: UNK
  6. OXYCODONE [Concomitant]
     Active Substance: OXYCODONE
     Dosage: UNK
     Dates: start: 2002
  7. OXYCODONE [Concomitant]
     Active Substance: OXYCODONE
     Dosage: UNK
     Dates: start: 20170122
  8. MORPHINE [Concomitant]
     Active Substance: MORPHINE
     Dosage: UNK
     Dates: start: 20170210
  9. SENOKOT [Concomitant]
     Active Substance: SENNOSIDES
     Indication: CONSTIPATION
     Dosage: UNK
     Dates: start: 20170120
  10. SUTENT [Suspect]
     Active Substance: SUNITINIB MALATE
     Dosage: 10 MG TWICE DAILY
     Dates: start: 20170120, end: 20170220
  11. MONOPRIL [Concomitant]
     Active Substance: FOSINOPRIL SODIUM
     Dosage: UNK
  12. METOPROLOL. [Concomitant]
     Active Substance: METOPROLOL
     Dosage: UNK
  13. POTASSIUM [Concomitant]
     Active Substance: POTASSIUM
     Dosage: UNK
     Dates: start: 20170202
  14. POTASSIUM [Concomitant]
     Active Substance: POTASSIUM
     Dosage: UNK
     Dates: start: 20170210
  15. SIMVASTATIN. [Concomitant]
     Active Substance: SIMVASTATIN
     Dosage: UNK
  16. OXYCODONE [Concomitant]
     Active Substance: OXYCODONE
     Dosage: UNK
     Dates: start: 20170102
  17. LASIX [Concomitant]
     Active Substance: FUROSEMIDE
     Dosage: UNK
     Dates: start: 20170210
  18. SUTENT [Suspect]
     Active Substance: SUNITINIB MALATE
     Dosage: 37.5 MG, CYCLIC (28 DAYS ON 14 DAYS OFF)
     Route: 048
     Dates: start: 20170123, end: 20170302
  19. LAXATIVE [Concomitant]
     Active Substance: UNSPECIFIED INGREDIENT
     Dosage: UNK

REACTIONS (23)
  - Mucosal inflammation [Recovering/Resolving]
  - Nausea [Unknown]
  - Death [Fatal]
  - Fatigue [Recovering/Resolving]
  - Constipation [Unknown]
  - Dysgeusia [Recovering/Resolving]
  - Decreased appetite [Recovering/Resolving]
  - Pulmonary oedema [Unknown]
  - Cystitis pseudomonal [Unknown]
  - Hypotension [Unknown]
  - Pain [Recovering/Resolving]
  - Drug dose omission [Unknown]
  - Stomatitis [Unknown]
  - Dyspnoea [Unknown]
  - Pneumonia [Unknown]
  - Gastroenteritis viral [Unknown]
  - Pollakiuria [Unknown]
  - Asthenia [Unknown]
  - Weight decreased [Unknown]
  - Diarrhoea [Unknown]
  - Thyroid function test abnormal [Unknown]
  - Neoplasm progression [Unknown]
  - Confusional state [Recovering/Resolving]

NARRATIVE: CASE EVENT DATE: 201701
